FAERS Safety Report 9126846 (Version 1)
Quarter: 2013Q1

REPORT INFORMATION
  Report Type: Report from Study
  Country: DE (occurrence: DE)
  Receive Date: 20130122
  Receipt Date: 20130122
  Transmission Date: 20140127
  Serious: Yes (Death, Hospitalization)
  Sender: FDA-Public Use
  Company Number: DE-BRISTOL-MYERS SQUIBB COMPANY-17277757

PATIENT
  Sex: Female
  Weight: 85 kg

DRUGS (3)
  1. PACLITAXEL [Suspect]
     Route: 042
  2. BEVACIZUMAB [Suspect]
     Indication: BREAST CANCER METASTATIC
     Route: 065
  3. DEXAMETHASONE [Concomitant]
     Route: 042

REACTIONS (2)
  - Diverticulitis [Fatal]
  - Haemorrhage [Fatal]
